FAERS Safety Report 10776699 (Version 7)
Quarter: 2016Q4

REPORT INFORMATION
  Report Type: Report from Study
  Country: US (occurrence: US)
  Receive Date: 20150209
  Receipt Date: 20161111
  Transmission Date: 20170206
  Serious: Yes (Other)
  Sender: FDA-Public Use
  Company Number: US-GLAXOSMITHKLINE-A1089014A

PATIENT
  Sex: Female

DRUGS (2)
  1. BELIMUMAB [Suspect]
     Active Substance: BELIMUMAB
     Indication: SYSTEMIC LUPUS ERYTHEMATOSUS
     Route: 042
  2. BENLYSTA [Suspect]
     Active Substance: BELIMUMAB
     Indication: SYSTEMIC LUPUS ERYTHEMATOSUS
     Dosage: UNK, U
     Route: 042

REACTIONS (6)
  - Surgery [Unknown]
  - Impaired healing [Unknown]
  - Gallbladder operation [Unknown]
  - Impaired work ability [Unknown]
  - Drug dose omission [Unknown]
  - Malaise [Unknown]
